FAERS Safety Report 6731207-6 (Version None)
Quarter: 2010Q2

REPORT INFORMATION
  Report Type: 
  Country: None (occurrence: None)
  Receive Date: 20100518
  Receipt Date: 20100510
  Transmission Date: 20101027
  Serious: Yes (Other)
  Sender: FDA-Public Use
  Company Number: US-ABBOTT-10P-163-0644012-00

PATIENT
  Sex: Male
  Weight: 75.364 kg

DRUGS (4)
  1. HUMIRA [Suspect]
     Indication: RHEUMATOID ARTHRITIS
     Route: 058
     Dates: start: 20070501
  2. HUMIRA [Suspect]
     Route: 058
     Dates: end: 20090701
  3. HUMIRA [Suspect]
     Route: 058
     Dates: start: 20100412
  4. METHOTREXATE [Concomitant]
     Indication: RHEUMATOID ARTHRITIS

REACTIONS (3)
  - ANIMAL BITE [None]
  - ARTHRALGIA [None]
  - STAPHYLOCOCCAL INFECTION [None]
